FAERS Safety Report 4794404-5 (Version None)
Quarter: 2005Q4

REPORT INFORMATION
  Report Type: 
  Country: None (occurrence: None)
  Receive Date: 20051011
  Receipt Date: 20040601
  Transmission Date: 20060501
  Serious: Yes (Hospitalization, Other)
  Sender: FDA-Public Use
  Company Number: 200412004JP

PATIENT
  Age: 59 Year
  Sex: Female
  Weight: 68 kg

DRUGS (8)
  1. ARAVA [Suspect]
     Indication: RHEUMATOID ARTHRITIS
     Route: 048
     Dates: start: 20031119, end: 20050119
  2. IMURAN [Suspect]
     Indication: RHEUMATOID ARTHRITIS
     Route: 048
  3. SELBEX [Concomitant]
     Indication: GASTRITIS
     Route: 048
  4. INTEBAN [Concomitant]
     Indication: RHEUMATOID ARTHRITIS
     Route: 048
  5. SHIOSOL [Concomitant]
     Indication: RHEUMATOID ARTHRITIS
     Route: 030
  6. SANCOBA [Concomitant]
     Indication: ASTHENOPIA
     Route: 031
     Dates: start: 20040201
  7. ISODINE [Concomitant]
     Indication: DERMATITIS
     Route: 058
     Dates: start: 20040218, end: 20040225
  8. LEUCOVORIN [Concomitant]
     Route: 048
     Dates: start: 20040317, end: 20040831

REACTIONS (6)
  - HYPERTENSION [None]
  - PLATELET COUNT DECREASED [None]
  - RED BLOOD CELL COUNT DECREASED [None]
  - STOMATITIS [None]
  - TONGUE NEOPLASM MALIGNANT STAGE UNSPECIFIED [None]
  - WHITE BLOOD CELL COUNT DECREASED [None]
